FAERS Safety Report 19074222 (Version 1)
Quarter: 2021Q1

REPORT INFORMATION
  Report Type: Spontaneous
  Country: US (occurrence: US)
  Receive Date: 20210330
  Receipt Date: 20210330
  Transmission Date: 20210420
  Serious: Yes (Hospitalization, Other)
  Sender: FDA-Public Use
  Company Number: US-PFIZER INC-2021329729

PATIENT
  Age: 48 Year
  Sex: Male

DRUGS (1)
  1. XELJANZ XR [Suspect]
     Active Substance: TOFACITINIB CITRATE
     Indication: RHEUMATOID ARTHRITIS
     Dosage: 11 MG, 1X/DAY
     Route: 048
     Dates: start: 202011

REACTIONS (7)
  - Colitis ulcerative [Unknown]
  - Condition aggravated [Unknown]
  - Spinal fracture [Unknown]
  - Seizure [Unknown]
  - Pneumonia [Unknown]
  - Drug ineffective [Unknown]
  - Fall [Unknown]

NARRATIVE: CASE EVENT DATE: 20210224
